FAERS Safety Report 4498554-2 (Version None)
Quarter: 2004Q4

REPORT INFORMATION
  Report Type: 
  Country: None (occurrence: None)
  Receive Date: 20041105
  Receipt Date: 20041023
  Transmission Date: 20050328
  Serious: Yes (Other)
  Sender: FDA-Public Use
  Company Number: 2004082935

PATIENT
  Age: 65 Year
  Sex: Female
  Weight: 77.1115 kg

DRUGS (8)
  1. DILANTIN [Suspect]
     Indication: CONVULSION
     Dosage: ORAL
     Route: 048
     Dates: start: 19740101
  2. RABEPRAZOLE SODIUM [Concomitant]
  3. CONJUGATED ESTROGENS [Concomitant]
  4. MOMETASONE FUROATE [Concomitant]
  5. FLUTICASONE PROPIONATE [Concomitant]
  6. DESLORATADINE (DESLORATADINE) [Concomitant]
  7. PRIMIDONE [Concomitant]
  8. ARTHROTEC [Concomitant]

REACTIONS (1)
  - CORNEAL DYSTROPHY [None]
